FAERS Safety Report 8568712-6 (Version None)
Quarter: 2012Q3

REPORT INFORMATION
  Report Type: 
  Country: None (occurrence: None)
  Receive Date: 20120803
  Receipt Date: 20120510
  Transmission Date: 20120928
  Serious: No
  Sender: FDA-Public Use
  Company Number: US-ABBOTT-12P-163-0934216-00

PATIENT
  Sex: Female
  Weight: 75.818 kg

DRUGS (7)
  1. JANUMET [Concomitant]
     Indication: DIABETES MELLITUS
     Dosage: 50/1000
  2. NIASPAN [Suspect]
     Indication: BLOOD CHOLESTEROL
  3. PRAVACHOL [Concomitant]
     Indication: BLOOD CHOLESTEROL
  4. METOPROLOL TARTRATE [Concomitant]
     Indication: HEART RATE IRREGULAR
  5. LEVOTHYROXINE SODIUM [Concomitant]
     Indication: THYROID DISORDER
  6. ZOLOFT [Concomitant]
     Indication: PRODUCT USED FOR UNKNOWN INDICATION
  7. ASPIRIN [Concomitant]
     Indication: PRODUCT USED FOR UNKNOWN INDICATION

REACTIONS (6)
  - HYPERHIDROSIS [None]
  - DYSKINESIA [None]
  - ERYTHEMA [None]
  - DYSPEPSIA [None]
  - FEELING HOT [None]
  - PARAESTHESIA [None]
